FAERS Safety Report 7147816-9 (Version None)
Quarter: 2010Q4

REPORT INFORMATION
  Report Type: 
  Country: None (occurrence: None)
  Receive Date: 20101206
  Receipt Date: 20101206
  Transmission Date: 20110411
  Serious: Yes (Hospitalization)
  Sender: FDA-Public Use
  Company Number: None

PATIENT
  Age: 79 Year
  Sex: Female
  Weight: 88 kg

DRUGS (1)
  1. WARFARIN SODIUM [Suspect]
     Indication: ATRIAL FIBRILLATION

REACTIONS (8)
  - ACTIVATED PARTIAL THROMBOPLASTIN TIME [None]
  - ACTIVATED PARTIAL THROMBOPLASTIN TIME PROLONGED [None]
  - HEADACHE [None]
  - INTERNATIONAL NORMALISED RATIO [None]
  - INTERNATIONAL NORMALISED RATIO INCREASED [None]
  - INTRAVENTRICULAR HAEMORRHAGE [None]
  - NAUSEA [None]
  - PROTHROMBIN TIME PROLONGED [None]
